FAERS Safety Report 9558944 (Version 3)
Quarter: 2014Q4

REPORT INFORMATION
  Report Type: Report from Study
  Country: MX (occurrence: MX)
  Receive Date: 20130927
  Receipt Date: 20141111
  Transmission Date: 20150529
  Serious: Yes (Hospitalization, Other)
  Sender: FDA-Public Use
  Company Number: MX-009507513-1309MEX011402

PATIENT
  Age: 58 Year
  Sex: Male
  Weight: 65 kg

DRUGS (4)
  1. BORTEZOMIB [Suspect]
     Active Substance: BORTEZOMIB
     Indication: PLASMA CELL MYELOMA
     Dosage: 1.3 MG/M2(0.98 MG/MM3 WAS THE VOLUME INJECTED) ON DAY ONE, FOUR, EIGHT, ELEVEN AND EVERY 21 DAYS
     Route: 058
     Dates: start: 20130716, end: 20130805
  2. DEXAMETHASONE. [Suspect]
     Active Substance: DEXAMETHASONE
     Indication: PLASMA CELL MYELOMA
     Dosage: 20 MG ON DAY ONE, TWO, FOUR, FIVE, EIGHT, NINE, ELEVEN, TWELVE AND EVERY 21 DAYS
     Route: 048
     Dates: start: 20130716, end: 20130805
  3. DEXAMETHASONE. [Suspect]
     Active Substance: DEXAMETHASONE
     Dosage: 20 MG ON DAY ONE, TWO, FOUR, FIVE, EIGHT, NINE, ELEVEN, TWELVE AND EVERY 21 DAYS
     Route: 048
     Dates: start: 20130817
  4. BORTEZOMIB [Suspect]
     Active Substance: BORTEZOMIB
     Dosage: 1.3 MG/M2(0.98 MG/MM3 WAS THE VOLUME INJECTED) ON DAY ONE, FOUR, EIGHT, ELEVEN AND EVERY 21 DAYS
     Route: 058
     Dates: start: 20130817

REACTIONS (2)
  - Thrombocytopenia [Recovered/Resolved]
  - Herpes zoster [Recovered/Resolved]

NARRATIVE: CASE EVENT DATE: 20130817
